FAERS Safety Report 4287955-3 (Version None)
Quarter: 2004Q1

REPORT INFORMATION
  Report Type: 
  Country: None (occurrence: None)
  Receive Date: 20040205
  Receipt Date: 20040119
  Transmission Date: 20041129
  Serious: Yes (Hospitalization)
  Sender: FDA-Public Use
  Company Number: A01200305072

PATIENT
  Age: 57 Year
  Sex: Female

DRUGS (9)
  1. PLAVIX [Suspect]
     Indication: PROPHYLAXIS
     Dosage: 75 MG QD, ORAL
     Route: 048
     Dates: start: 20030925, end: 20031016
  2. CYCLOSPORINE [Suspect]
     Dates: end: 20031017
  3. CYCLOSPORINE [Suspect]
     Dates: start: 20031019
  4. SIMVASTATIN [Suspect]
     Dates: end: 20031001
  5. ALLOPURINOL [Suspect]
     Dates: end: 20031001
  6. LISINOPRIL [Concomitant]
  7. FUROSEMIDE [Concomitant]
  8. PREDNISONE [Concomitant]
  9. AZATHIOPRINE [Concomitant]

REACTIONS (1)
  - RHABDOMYOLYSIS [None]
